FAERS Safety Report 24615310 (Version 2)
Quarter: 2024Q4

REPORT INFORMATION
  Report Type: Spontaneous
  Country: US (occurrence: US)
  Receive Date: 20241113
  Receipt Date: 20241213
  Transmission Date: 20250115
  Serious: No
  Sender: SANOFI AVENTIS
  Company Number: US-SA-2024SA325096

PATIENT
  Age: 3 Year
  Sex: Female
  Weight: 18.18 kg

DRUGS (12)
  1. NEXVIAZYME [Suspect]
     Active Substance: AVALGLUCOSIDASE ALFA-NGPT
     Indication: Glycogen storage disease type II
     Dosage: 700 MG, QOW
     Route: 042
     Dates: start: 20241024
  2. ACETAMINOPHEN [Concomitant]
     Active Substance: ACETAMINOPHEN
     Dosage: UNK
  3. STERILE WATER [Concomitant]
     Active Substance: WATER
     Dosage: UNK
  4. EPINEPHRINE [Concomitant]
     Active Substance: EPINEPHRINE
     Dosage: UNK
  5. HEPARIN [Concomitant]
     Active Substance: HEPARIN SODIUM
     Dosage: UNK
  6. SODIUM CHLORIDE [Concomitant]
     Active Substance: SODIUM CHLORIDE
  7. MONTELUKAST SODIUM [Concomitant]
     Active Substance: MONTELUKAST\MONTELUKAST SODIUM
  8. LIDOCAINE [Concomitant]
     Active Substance: LIDOCAINE
  9. DEXTROSE [Concomitant]
     Active Substance: DEXTROSE MONOHYDRATE
  10. DIPHENHYDRAMINE [Concomitant]
     Active Substance: DIPHENHYDRAMINE
  11. CETIRIZINE HCL [Concomitant]
     Active Substance: CETIRIZINE HYDROCHLORIDE
  12. SOLU-CORTEF [Concomitant]
     Active Substance: HYDROCORTISONE SODIUM SUCCINATE

REACTIONS (5)
  - Nasopharyngitis [Unknown]
  - Rhinorrhoea [Unknown]
  - Sneezing [Unknown]
  - Cough [Unknown]
  - Product preparation error [Unknown]

NARRATIVE: CASE EVENT DATE: 20241001
